FAERS Safety Report 6568920-X (Version None)
Quarter: 2010Q1

REPORT INFORMATION
  Report Type: 
  Country: None (occurrence: None)
  Receive Date: 20100203
  Receipt Date: 20100129
  Transmission Date: 20100710
  Serious: Yes (Life-Threatening, Hospitalization, Other)
  Sender: FDA-Public Use
  Company Number: US-PFIZER INC-2009311011

PATIENT
  Sex: Male
  Weight: 72.574 kg

DRUGS (2)
  1. MICRONASE [Suspect]
     Indication: DIABETES MELLITUS
     Dosage: 5 MG, 1X/DAY
     Route: 048
  2. TEGRETOL [Suspect]
     Indication: NEURALGIA
     Dosage: UNK
     Dates: start: 20081201

REACTIONS (2)
  - BLOOD SODIUM DECREASED [None]
  - NEURALGIA [None]
